FAERS Safety Report 17167875 (Version 25)
Quarter: 2024Q1

REPORT INFORMATION
  Report Type: Other
  Country: CA (occurrence: None)
  Receive Date: 20191218
  Receipt Date: 20240318
  Transmission Date: 20240410
  Serious: Yes (Hospitalization, Other)
  Sender: FDA-Public Use
  Company Number: CA-ROCHE-2499007

PATIENT
  Age: 32 Year
  Sex: Female
  Weight: 58 kg

DRUGS (8)
  1. OCREVUS [Suspect]
     Active Substance: OCRELIZUMAB
     Indication: Relapsing-remitting multiple sclerosis
     Dosage: 300 MG AT DAY 0 AND 14, THEN 600 MG EVERY 6 MONTH.
     Route: 042
     Dates: start: 2016
  2. OCREVUS [Suspect]
     Active Substance: OCRELIZUMAB
     Dosage: 300 MG AT DAY 0 AND 14, THEN 600 MG EVERY 6 MONTH.
     Route: 042
     Dates: start: 20181218
  3. OCREVUS [Suspect]
     Active Substance: OCRELIZUMAB
     Dosage: 600 MG EVERY 6 MONTH.
     Route: 042
  4. BENADRYL [Suspect]
     Active Substance: DIPHENHYDRAMINE HYDROCHLORIDE
     Indication: Product used for unknown indication
     Route: 065
  5. FLUOXETINE [Concomitant]
     Active Substance: FLUOXETINE HYDROCHLORIDE
  6. YASMIN [Concomitant]
     Active Substance: DROSPIRENONE\ETHINYL ESTRADIOL
     Indication: Contraception
  7. AMOXICILLIN\CLAVULANIC ACID [Concomitant]
     Active Substance: AMOXICILLIN\CLAVULANIC ACID
     Indication: Infection
  8. ADVIL [Concomitant]
     Active Substance: IBUPROFEN

REACTIONS (47)
  - Meningitis viral [Recovered/Resolved]
  - Pneumonia [Recovered/Resolved]
  - Conjunctivitis [Recovering/Resolving]
  - Depression [Recovered/Resolved]
  - Menstruation irregular [Unknown]
  - Vaginal discharge [Unknown]
  - Eye infection [Recovered/Resolved]
  - Asthenia [Not Recovered/Not Resolved]
  - Abdominal pain upper [Unknown]
  - Chalazion [Recovered/Resolved]
  - Fatigue [Unknown]
  - Dizziness [Unknown]
  - Headache [Unknown]
  - Feeling hot [Unknown]
  - Oropharyngeal pain [Unknown]
  - Impatience [Unknown]
  - Nasopharyngitis [Not Recovered/Not Resolved]
  - Pain [Not Recovered/Not Resolved]
  - Pain in extremity [Unknown]
  - Neuralgia [Not Recovered/Not Resolved]
  - Gastrointestinal disorder [Unknown]
  - Paraesthesia [Unknown]
  - Pyrexia [Recovered/Resolved]
  - Gastroenteritis viral [Recovered/Resolved]
  - Maternal exposure before pregnancy [Unknown]
  - Nausea [Unknown]
  - Stress [Not Recovered/Not Resolved]
  - Gait disturbance [Not Recovered/Not Resolved]
  - Blood pressure decreased [Unknown]
  - Uterine contractions abnormal [Recovered/Resolved]
  - Panic attack [Recovered/Resolved]
  - Hiccups [Unknown]
  - Infusion related reaction [Unknown]
  - Cough [Unknown]
  - Sinusitis [Unknown]
  - Sinusitis [Recovered/Resolved]
  - Musculoskeletal stiffness [Not Recovered/Not Resolved]
  - Pruritus [Not Recovered/Not Resolved]
  - Influenza [Unknown]
  - Illness [Unknown]
  - Eye infection [Not Recovered/Not Resolved]
  - Hypersensitivity [Not Recovered/Not Resolved]
  - Hypoaesthesia [Unknown]
  - Polymenorrhoea [Unknown]
  - Rhinitis [Recovered/Resolved]
  - Ear infection [Recovered/Resolved]
  - Meningoencephalitis viral [Unknown]

NARRATIVE: CASE EVENT DATE: 20181201
